FAERS Safety Report 9192473 (Version 2)
Quarter: 2013Q2

REPORT INFORMATION
  Report Type: Spontaneous
  Country: BE (occurrence: None)
  Receive Date: 20130318
  Receipt Date: 20130612
  Transmission Date: 20140414
  Serious: Yes (Other)
  Sender: FDA-Public Use
  Company Number: 2013035033

PATIENT
  Age: 59 Year
  Sex: Female

DRUGS (2)
  1. HIZENTRA (IMMUNOGLOBULIN HUMAN NORMAL) [Suspect]
     Indication: HYPOGAMMAGLOBULINAEMIA
     Dosage: NI   SUBCUTANEOUS
     Route: 058
  2. HIZENTRA (IMMUNOGLOBULIN HUMAN NORMAL) [Suspect]
     Indication: BRONCHITIS
     Dosage: NI   SUBCUTANEOUS
     Route: 058

REACTIONS (1)
  - Serum ferritin increased [None]
